FAERS Safety Report 6999871-4 (Version None)
Quarter: 2010Q3

REPORT INFORMATION
  Report Type: 
  Country: None (occurrence: None)
  Receive Date: 20100920
  Receipt Date: 20080530
  Transmission Date: 20110219
  Serious: No
  Sender: FDA-Public Use
  Company Number: US-ASTRAZENECA-2008UW08690

PATIENT
  Age: 64 Year
  Sex: Female
  Weight: 83.4 kg

DRUGS (26)
  1. SEROQUEL [Suspect]
     Indication: SLEEP DISORDER
     Dosage: 100 MG 1 OR 2 TIMES AT BED TIMES
     Route: 048
     Dates: start: 20020521
  2. SEROQUEL [Suspect]
     Indication: MAJOR DEPRESSION
     Dosage: 100 MG 1 OR 2 TIMES AT BED TIMES
     Route: 048
     Dates: start: 20020521
  3. SEROQUEL [Suspect]
     Route: 048
     Dates: start: 20021212
  4. SEROQUEL [Suspect]
     Route: 048
     Dates: start: 20021212
  5. SEROQUEL [Suspect]
     Route: 048
     Dates: start: 20030101, end: 20060301
  6. SEROQUEL [Suspect]
     Route: 048
     Dates: start: 20030101, end: 20060301
  7. ATIVAN [Concomitant]
     Dosage: 0.5-1 MG
     Dates: start: 20040506
  8. PAXIL [Concomitant]
     Dosage: 20-40MGS
     Dates: start: 19970101
  9. PREMARIN [Concomitant]
     Dates: start: 20020125
  10. DIGOXIN [Concomitant]
     Dates: start: 20020219
  11. HYZAAR [Concomitant]
     Dosage: 100/25, EVERY DAY
     Dates: start: 20020225
  12. SPIRONOLACTONE [Concomitant]
     Dates: start: 20020322
  13. PLENDIL [Concomitant]
     Dates: start: 20020319
  14. COREG [Concomitant]
     Dosage: 3.125-12.50 MG
     Dates: start: 20020325
  15. LASIX [Concomitant]
     Dates: start: 20020403
  16. KLOR-CON [Concomitant]
     Dates: start: 20020403
  17. NEURONTIN [Concomitant]
     Dates: start: 20020703
  18. WELLBUTRIN SR [Concomitant]
     Dates: start: 20021018
  19. PLAVIX [Concomitant]
     Dates: start: 20030109
  20. CLARINEX [Concomitant]
     Dates: start: 20030321
  21. LIPITOR [Concomitant]
     Dates: start: 20030128
  22. AVANDIA [Concomitant]
     Dates: start: 20040303
  23. METFORMIN [Concomitant]
     Dosage: 500 MG, 2 TID
     Dates: start: 20040316
  24. RIFAMPIN [Concomitant]
     Dates: start: 20040611
  25. ASPIRIN [Concomitant]
     Dates: start: 20050117
  26. CYMBALTA [Concomitant]
     Dates: start: 20050526

REACTIONS (5)
  - DIABETES MELLITUS [None]
  - DIABETES MELLITUS INADEQUATE CONTROL [None]
  - INTERVERTEBRAL DISC PROTRUSION [None]
  - OBESITY [None]
  - TYPE 2 DIABETES MELLITUS [None]
